FAERS Safety Report 9928443 (Version 1)
Quarter: 2014Q1

REPORT INFORMATION
  Report Type: Report from Study
  Country: US (occurrence: US)
  Receive Date: 20140227
  Receipt Date: 20140227
  Transmission Date: 20141002
  Serious: Yes (Death, Other)
  Sender: FDA-Public Use
  Company Number: US-ASTELLAS-2014US001031

PATIENT
  Age: 54 Year
  Sex: Male

DRUGS (12)
  1. ERLOTINIB TABLET [Suspect]
     Indication: LUNG NEOPLASM MALIGNANT
     Dosage: UNK
     Route: 048
  2. AVASTIN /01555201/ [Suspect]
     Indication: LUNG NEOPLASM MALIGNANT
     Dosage: UNK
     Route: 042
  3. AVASTIN /01555201/ [Suspect]
     Dosage: 910 MG, UID/QD
     Route: 042
     Dates: start: 20120501
  4. AVASTIN /01555201/ [Suspect]
     Dosage: 935 MG, UNKNOWN/D
     Route: 042
     Dates: start: 20120410
  5. CARBOPLATIN [Concomitant]
     Indication: PRODUCT USED FOR UNKNOWN INDICATION
     Dosage: UNK
     Route: 042
  6. TAXOL [Concomitant]
     Indication: PRODUCT USED FOR UNKNOWN INDICATION
     Dosage: 285 MG, UID/QD
     Route: 042
     Dates: start: 20120501
  7. PEMETREXED DISODIUM [Concomitant]
     Indication: PRODUCT USED FOR UNKNOWN INDICATION
     Dosage: UNK
     Route: 065
  8. BENADRYL                           /00000402/ [Concomitant]
     Indication: PRODUCT USED FOR UNKNOWN INDICATION
     Dosage: 50 MG, UID/QD
     Route: 042
  9. PEPCID                             /00706001/ [Concomitant]
     Indication: PRODUCT USED FOR UNKNOWN INDICATION
     Dosage: 40 MG, UID/QD
     Route: 042
  10. DECADRON                           /00016001/ [Concomitant]
     Indication: PRODUCT USED FOR UNKNOWN INDICATION
     Dosage: 20 MG, UID/QD
     Route: 042
  11. ZOFRAN                             /00955301/ [Concomitant]
     Indication: PRODUCT USED FOR UNKNOWN INDICATION
     Dosage: 32 MG, UID/QD
     Route: 042
  12. NEULASTA [Concomitant]
     Indication: PRODUCT USED FOR UNKNOWN INDICATION
     Dosage: 6 MG, UNKNOWN/D
     Route: 058

REACTIONS (10)
  - Off label use [Unknown]
  - Death [Fatal]
  - Osteolysis [Unknown]
  - Adrenal mass [Unknown]
  - Malignant neoplasm progression [Unknown]
  - Flushing [Unknown]
  - Decreased appetite [Unknown]
  - Pruritus [Unknown]
  - Fatigue [Unknown]
  - Nausea [Unknown]
